FAERS Safety Report 6761556-7 (Version None)
Quarter: 2010Q2

REPORT INFORMATION
  Report Type: 
  Country: None (occurrence: None)
  Receive Date: 20100609
  Receipt Date: 20100531
  Transmission Date: 20101027
  Serious: Yes (Hospitalization)
  Sender: FDA-Public Use
  Company Number: GR-BIOGENIDEC-2010BI011987

PATIENT
  Age: 24 Year
  Sex: Male

DRUGS (1)
  1. AVONEX [Suspect]
     Indication: RELAPSING-REMITTING MULTIPLE SCLEROSIS
     Route: 030
     Dates: start: 20071125, end: 20100321

REACTIONS (1)
  - THYROID CANCER METASTATIC [None]
